FAERS Safety Report 9202499 (Version 2)
Quarter: 2013Q2

REPORT INFORMATION
  Report Type: Report from Study
  Country: US (occurrence: US)
  Receive Date: 20130401
  Receipt Date: 20130613
  Transmission Date: 20140414
  Serious: Yes (Other)
  Sender: FDA-Public Use
  Company Number: US-GILEAD-2013-0072358

PATIENT
  Age: 63 Year
  Sex: Female

DRUGS (18)
  1. RANOLAZINE [Suspect]
     Indication: ANGINA PECTORIS
     Dosage: 1000 MG, BID
     Route: 048
     Dates: start: 20121008, end: 20130321
  2. RANOLAZINE [Suspect]
     Dosage: 500 MG, BID
     Route: 048
     Dates: start: 20121001, end: 20121007
  3. LISINOPRIL [Concomitant]
     Indication: HYPERTENSION
     Dosage: UNK
     Dates: start: 20121009
  4. KLOR-CON [Concomitant]
     Indication: SUPPLEMENTATION THERAPY
     Dosage: UNK
     Dates: start: 2011
  5. NEXIUM                             /01479302/ [Concomitant]
     Indication: GASTROOESOPHAGEAL REFLUX DISEASE
     Dosage: UNK
     Dates: start: 2007
  6. ZOLOFT [Concomitant]
     Indication: DEPRESSION
     Dosage: UNK
     Dates: start: 2007
  7. CELEBREX [Concomitant]
     Indication: ARTHRITIS
     Dosage: UNK
     Dates: start: 2009
  8. METAXALONE [Concomitant]
     Indication: BACK PAIN
     Dosage: UNK
     Dates: start: 2011
  9. DULERA [Concomitant]
     Indication: BRONCHITIS
     Dosage: UNK
     Dates: start: 201209
  10. PROAIR                             /00139502/ [Concomitant]
     Indication: BRONCHITIS
     Dosage: UNK
     Dates: start: 201209
  11. LASIX                              /00032601/ [Concomitant]
     Indication: CARDIAC FAILURE CONGESTIVE
     Dosage: UNK
     Dates: start: 2011
  12. ASA [Concomitant]
     Indication: CORONARY ARTERY DISEASE
     Dosage: UNK
     Dates: start: 20120925
  13. SPIRONOLACTONE [Concomitant]
     Indication: CARDIAC FAILURE CONGESTIVE
     Dosage: UNK
     Dates: start: 2011
  14. CRESTOR [Concomitant]
     Indication: HYPERLIPIDAEMIA
     Dosage: UNK
     Dates: start: 2009
  15. LANTUS [Concomitant]
     Indication: DIABETES MELLITUS
     Dosage: UNK
     Dates: start: 20120926
  16. TOPROL [Concomitant]
     Indication: HYPERTENSION
     Dosage: UNK
     Dates: start: 20120926
  17. BUMEX [Concomitant]
     Indication: CORONARY ARTERY DISEASE
     Dosage: UNK
     Dates: start: 20120928
  18. HUMALOG [Concomitant]
     Indication: DIABETES MELLITUS
     Dosage: UNK
     Dates: start: 20120926

REACTIONS (2)
  - Cystatin C increased [Recovered/Resolved]
  - Blood creatinine increased [Recovered/Resolved]
